FAERS Safety Report 10245586 (Version 2)
Quarter: 2014Q4

REPORT INFORMATION
  Report Type: Spontaneous
  Country: US (occurrence: US)
  Receive Date: 20140619
  Receipt Date: 20141023
  Transmission Date: 20150528
  Serious: Yes (Other)
  Sender: FDA-Public Use
  Company Number: US-ABBVIE-14P-163-1247152-00

PATIENT
  Sex: Male
  Weight: 66.74 kg

DRUGS (1)
  1. DEPAKOTE [Suspect]
     Active Substance: DIVALPROEX SODIUM
     Indication: BIPOLAR DISORDER
     Route: 065
     Dates: start: 2008, end: 201311

REACTIONS (5)
  - Communication disorder [Recovered/Resolved]
  - Drug prescribing error [Recovered/Resolved]
  - Lethargy [Recovered/Resolved]
  - Parkinson^s disease [Recovered/Resolved]
  - Eating disorder [Recovered/Resolved]
